FAERS Safety Report 23507046 (Version 1)
Quarter: 2024Q1

REPORT INFORMATION
  Report Type: Report from Study
  Country: US (occurrence: US)
  Receive Date: 20240209
  Receipt Date: 20240209
  Transmission Date: 20240410
  Serious: Yes (Hospitalization)
  Sender: FDA-Public Use
  Company Number: US-HORIZON THERAPEUTICS-HZN-2024-000192

PATIENT

DRUGS (15)
  1. TEPEZZA [Suspect]
     Active Substance: TEPROTUMUMAB-TRBW
     Indication: Endocrine ophthalmopathy
     Dosage: FIRST DOSE, 1050 MG, EVERY 3 WEEKS
     Route: 042
     Dates: start: 20230903
  2. TEPEZZA [Suspect]
     Active Substance: TEPROTUMUMAB-TRBW
     Dosage: SECOND DOSE, 2100 MG, EVERY 3 WEEKS
     Route: 042
     Dates: start: 20230926
  3. TEPEZZA [Suspect]
     Active Substance: TEPROTUMUMAB-TRBW
     Dosage: THIRD DOSE, 2100 MG, EVERY 3 WEEKS
     Route: 042
     Dates: start: 20231018
  4. TEPEZZA [Suspect]
     Active Substance: TEPROTUMUMAB-TRBW
     Dosage: FOURTH DOSE, 2100 MG, EVERY 3 WEEKS
     Route: 042
     Dates: start: 20231107
  5. TEPEZZA [Suspect]
     Active Substance: TEPROTUMUMAB-TRBW
     Dosage: FIFTH DOSE, 2100 MG, EVERY 3 WEEKS
     Route: 042
     Dates: start: 20231128
  6. TEPEZZA [Suspect]
     Active Substance: TEPROTUMUMAB-TRBW
     Dosage: SIXTH DOSE, 2100 MG, EVERY 3 WEEKS
     Route: 042
     Dates: start: 20231220
  7. TEPEZZA [Suspect]
     Active Substance: TEPROTUMUMAB-TRBW
     Dosage: SEVENTH DOSE, 2100 MG, EVERY 3 WEEKS
     Route: 042
     Dates: start: 20240109
  8. TEPEZZA [Suspect]
     Active Substance: TEPROTUMUMAB-TRBW
     Dosage: EIGHT DOSE, 2100 MG, EVERY 3 WEEKS
     Route: 042
     Dates: start: 20240130
  9. ALDACTONE [Concomitant]
     Active Substance: SPIRONOLACTONE
  10. ATORVASTATIN [Concomitant]
     Active Substance: ATORVASTATIN
  11. LEVOTHYROXINE [Concomitant]
     Active Substance: LEVOTHYROXINE\LEVOTHYROXINE SODIUM
  12. LOSARTAN [Concomitant]
     Active Substance: LOSARTAN
     Dosage: 100 MG
     Route: 065
  13. VITAMINS [Concomitant]
     Active Substance: VITAMINS
  14. METOPROLOL TARTRATE [Concomitant]
     Active Substance: METOPROLOL TARTRATE
     Dosage: 12.5 MG, BID
     Route: 065
  15. AMLODIPINE [Concomitant]
     Active Substance: AMLODIPINE BESYLATE
     Dosage: DAILY
     Route: 065

REACTIONS (4)
  - Blood pressure increased [Unknown]
  - Myalgia [Recovered/Resolved]
  - Muscle spasms [Recovered/Resolved]
  - Muscle spasms [Unknown]

NARRATIVE: CASE EVENT DATE: 20231101
